FAERS Safety Report 4439964-9 (Version None)
Quarter: 2004Q3

REPORT INFORMATION
  Report Type: 
  Country: None (occurrence: None)
  Receive Date: 20040831
  Receipt Date: 20040525
  Transmission Date: 20050211
  Serious: No
  Sender: FDA-Public Use
  Company Number: 701853

PATIENT
  Age: 43 Year
  Sex: Female
  Weight: 86.1834 kg

DRUGS (2)
  1. AMEVIVE [Suspect]
     Indication: PSORIASIS
     Dosage: 15 MG QW IM
     Route: 030
     Dates: start: 20040204, end: 20040407
  2. AMEVIVE [Suspect]
     Indication: PSORIATIC ARTHROPATHY
     Dosage: 15 MG QW IM
     Route: 030
     Dates: start: 20040204, end: 20040407

REACTIONS (2)
  - DRUG INEFFECTIVE [None]
  - PSORIATIC ARTHROPATHY [None]
